FAERS Safety Report 4981484-7 (Version None)
Quarter: 2006Q2

REPORT INFORMATION
  Report Type: 
  Country: None (occurrence: None)
  Receive Date: 20060424
  Receipt Date: 20051206
  Transmission Date: 20061013
  Serious: Yes (Hospitalization, Disabling)
  Sender: FDA-Public Use
  Company Number: US-MERCK-0512USA00845

PATIENT
  Age: 56 Year
  Sex: Male
  Weight: 79 kg

DRUGS (11)
  1. VIOXX [Suspect]
     Indication: ARTHRITIS
     Route: 048
     Dates: start: 19990101, end: 20010101
  2. VIOXX [Suspect]
     Indication: OSTEOARTHRITIS
     Route: 048
     Dates: start: 19990101, end: 20010101
  3. LOTREL [Concomitant]
     Indication: HYPERTENSION
     Route: 065
     Dates: start: 19900101
  4. LIPITOR [Concomitant]
     Indication: BLOOD CHOLESTEROL INCREASED
     Route: 065
     Dates: start: 19980101
  5. HYDROCHLOROTHIAZIDE [Concomitant]
     Route: 065
  6. AMOXICILLIN [Concomitant]
     Route: 065
  7. METHYLPREDNISOLONE [Concomitant]
     Route: 065
  8. TRIAM-A [Concomitant]
     Route: 065
  9. ZITHROMAX [Concomitant]
     Route: 065
  10. PROPOXYPHENE NAPSYLATE [Concomitant]
     Route: 065
  11. ASPIRIN [Concomitant]
     Indication: PAIN
     Route: 065
     Dates: start: 19760101

REACTIONS (4)
  - CHEST PAIN [None]
  - CORONARY ARTERY DISEASE [None]
  - HYPERSENSITIVITY [None]
  - MYOCARDIAL INFARCTION [None]
